FAERS Safety Report 4307775-0 (Version None)
Quarter: 2004Q1

REPORT INFORMATION
  Report Type: 
  Country: None (occurrence: None)
  Receive Date: 20040225
  Receipt Date: 20030512
  Transmission Date: 20041129
  Serious: Yes (Other)
  Sender: FDA-Public Use
  Company Number: WAES 0305USA01390

PATIENT
  Age: 54 Year
  Sex: Male
  Weight: 107.0489 kg

DRUGS (2)
  1. ZOCOR [Suspect]
     Indication: LIPIDS INCREASED
     Dosage: 40 MG/  ; 20 MG     :  DAILY/PO
     Route: 048
     Dates: end: 20030417
  2. ZOCOR [Suspect]
     Indication: LIPIDS INCREASED
     Dosage: 40 MG/  ; 20 MG     :  DAILY/PO
     Route: 048
     Dates: start: 20030418, end: 20030507

REACTIONS (2)
  - BLOOD CREATINE PHOSPHOKINASE INCREASED [None]
  - MYALGIA [None]
